FAERS Safety Report 12332965 (Version 1)
Quarter: 2016Q2

REPORT INFORMATION
  Report Type: Spontaneous
  Country: IN (occurrence: IN)
  Receive Date: 20160504
  Receipt Date: 20160504
  Transmission Date: 20160815
  Serious: Yes (Other)
  Sender: FDA-Public Use
  Company Number: IN-ACTAVIS-2016-08761

PATIENT
  Age: 57 Year
  Sex: Male

DRUGS (4)
  1. DULOXETINE (UNKNOWN) [Suspect]
     Active Substance: DULOXETINE
     Dosage: 60 MG, DAILY
     Route: 048
  2. ATENOLOL. [Concomitant]
     Active Substance: ATENOLOL
     Indication: HYPERTENSION
     Dosage: 25 MG, DAILY
     Route: 048
  3. METFORMIN HYDROCHLORIDE. [Concomitant]
     Active Substance: METFORMIN HYDROCHLORIDE
     Indication: DIABETES MELLITUS
     Dosage: 500 MG, BID
     Route: 065
  4. DULOXETINE (UNKNOWN) [Suspect]
     Active Substance: DULOXETINE
     Indication: DEPRESSION
     Dosage: 60 MG, BID
     Route: 048

REACTIONS (1)
  - Drug eruption [Recovered/Resolved with Sequelae]
